FAERS Safety Report 17839929 (Version 1)
Quarter: 2020Q2

REPORT INFORMATION
  Report Type: Spontaneous
  Country: CA (occurrence: CA)
  Receive Date: 20200529
  Receipt Date: 20200529
  Transmission Date: 20200714
  Serious: Yes (Death, Hospitalization)
  Sender: FDA-Public Use
  Company Number: CA-ROCHE-2602569

PATIENT
  Age: 79 Year
  Sex: Female
  Weight: 63 kg

DRUGS (21)
  1. RITUXIMAB. [Suspect]
     Active Substance: RITUXIMAB
     Indication: MYASTHENIA GRAVIS
     Route: 042
  2. DIPHENHYDRAMINE HYDROCHLORIDE. [Suspect]
     Active Substance: DIPHENHYDRAMINE HYDROCHLORIDE
     Indication: PREMEDICATION
     Route: 048
  3. ACETAMINOPHEN. [Concomitant]
     Active Substance: ACETAMINOPHEN
     Route: 048
  4. AZATHIOPRINE. [Concomitant]
     Active Substance: AZATHIOPRINE
     Route: 065
  5. ESOMEPRAZOLE. [Concomitant]
     Active Substance: ESOMEPRAZOLE MAGNESIUM
  6. ACETAMINOPHEN. [Suspect]
     Active Substance: ACETAMINOPHEN
     Indication: PREMEDICATION
     Route: 048
  7. FOLIC ACID. [Concomitant]
     Active Substance: FOLIC ACID
  8. BISOPROLOL [Concomitant]
     Active Substance: BISOPROLOL
  9. CITALOPRAM [Concomitant]
     Active Substance: CITALOPRAM HYDROBROMIDE
  10. METHYLPREDNISOLONE SODIUM SUCCINATE. [Suspect]
     Active Substance: METHYLPREDNISOLONE SODIUM SUCCINATE
     Indication: PRODUCT USED FOR UNKNOWN INDICATION
     Route: 042
  11. METHYLPREDNISOLONE SODIUM SUCCINATE. [Suspect]
     Active Substance: METHYLPREDNISOLONE SODIUM SUCCINATE
     Route: 042
  12. LORAZEPAM. [Concomitant]
     Active Substance: LORAZEPAM
  13. PREDNISONE. [Concomitant]
     Active Substance: PREDNISONE
  14. ATORVASTATIN CALCIUM. [Concomitant]
     Active Substance: ATORVASTATIN CALCIUM
     Route: 065
  15. INSULIN HUMAN [Concomitant]
     Active Substance: INSULIN HUMAN
  16. BENADRYL [Concomitant]
     Active Substance: DIPHENHYDRAMINE HYDROCHLORIDE
     Route: 048
  17. CALCIUM CARBONATE/VITAMIN D3 [Concomitant]
     Active Substance: CALCIUM CARBONATE\CHOLECALCIFEROL
  18. LEVETIRACETAM. [Concomitant]
     Active Substance: LEVETIRACETAM
     Route: 065
  19. MESTINON [Concomitant]
     Active Substance: PYRIDOSTIGMINE BROMIDE
     Route: 065
  20. RISEDRONATE SODIUM. [Concomitant]
     Active Substance: RISEDRONATE SODIUM
  21. SYNTHROID [Concomitant]
     Active Substance: LEVOTHYROXINE SODIUM

REACTIONS (29)
  - Blood pressure fluctuation [Fatal]
  - Chest pain [Fatal]
  - Dysphagia [Fatal]
  - Haemorrhoids [Fatal]
  - Impaired healing [Fatal]
  - Increased tendency to bruise [Fatal]
  - Infusion related reaction [Fatal]
  - Oxygen saturation decreased [Fatal]
  - Somnolence [Fatal]
  - Blood pressure increased [Fatal]
  - Erythema [Fatal]
  - Fatigue [Fatal]
  - Myasthenia gravis [Fatal]
  - Wound infection [Fatal]
  - Blood pressure systolic increased [Fatal]
  - Fall [Fatal]
  - Cough [Fatal]
  - Head injury [Fatal]
  - Off label use [Fatal]
  - Scab [Fatal]
  - Contusion [Fatal]
  - Dizziness [Fatal]
  - Haemorrhage intracranial [Fatal]
  - Swelling [Fatal]
  - Vomiting [Fatal]
  - Wound necrosis [Fatal]
  - Bone contusion [Fatal]
  - Heart rate decreased [Fatal]
  - Wound [Fatal]
